FAERS Safety Report 9077310 (Version 1)
Quarter: 2013Q1

REPORT INFORMATION
  Report Type: Spontaneous
  Country: US (occurrence: US)
  Receive Date: 20130130
  Receipt Date: 20130130
  Transmission Date: 20140127
  Serious: No
  Sender: FDA-Public Use
  Company Number: US-BAYER-2013-009236

PATIENT
  Age: 49 Year
  Sex: Female
  Weight: 69.39 kg

DRUGS (10)
  1. BETASERON [Suspect]
     Dosage: 0.25 MG, QOD
     Route: 058
  2. PHENERGAN [Concomitant]
     Dosage: 25 MG, UNK
  3. AMBIEN [Concomitant]
     Dosage: 10 MG, UNK
  4. PREMARIN [Concomitant]
     Dosage: 0.3 MG, UNK
  5. ACETYLSALICYLIC ACID [Concomitant]
     Dosage: 81 MG, UNK
  6. NEURONTIN [Concomitant]
     Dosage: 300 MG, UNK
  7. PROZAC [Concomitant]
     Dosage: 10 MG, UNK
  8. VITAMIN D [Concomitant]
     Dosage: 1000 U, UNK
  9. VITAMIN B12 [Concomitant]
     Dosage: 1000 TR
  10. ACTHAR HP [Concomitant]
     Dosage: 80 U, UNK

REACTIONS (1)
  - Influenza like illness [Unknown]
